FAERS Safety Report 5427279-1 (Version None)
Quarter: 2007Q3

REPORT INFORMATION
  Report Type: 
  Country: None (occurrence: None)
  Receive Date: 20070823
  Receipt Date: 20070806
  Transmission Date: 20080115
  Serious: Yes (Hospitalization)
  Sender: FDA-Public Use
  Company Number: 6036742

PATIENT
  Age: 78 Year
  Sex: Female

DRUGS (5)
  1. ENALAPRIL MALEATE [Suspect]
  2. HYDROCHLOROTHIAZIDE [Suspect]
  3. AMILORIDE HCL [Suspect]
  4. SPIRONOLACTONE [Suspect]
  5. DIGOXIN [Suspect]
     Dosage: 0.25 MG ( O.25 MG, 1 IN A D)

REACTIONS (15)
  - ATRIAL FIBRILLATION [None]
  - BLOOD CREATININE INCREASED [None]
  - BLOOD GLUCOSE INCREASED [None]
  - BLOOD PH DECREASED [None]
  - BLOOD PRESSURE DECREASED [None]
  - BLOOD UREA INCREASED [None]
  - CARDIAC MURMUR [None]
  - DEHYDRATION [None]
  - ELECTROCARDIOGRAM QRS COMPLEX PROLONGED [None]
  - HAEMODIALYSIS [None]
  - HYPERKALAEMIA [None]
  - HYPONATRAEMIA [None]
  - LEFT VENTRICULAR HYPERTROPHY [None]
  - PCO2 DECREASED [None]
  - TACHYCARDIA [None]
